FAERS Safety Report 7082583-9 (Version None)
Quarter: 2010Q3

REPORT INFORMATION
  Report Type: 
  Country: None (occurrence: None)
  Receive Date: 20100929
  Receipt Date: 20100610
  Transmission Date: 20110219
  Serious: No
  Sender: FDA-Public Use
  Company Number: US-WYE-H15840210

PATIENT
  Age: 52 Year
  Sex: Female

DRUGS (1)
  1. PRISTIQ [Suspect]
     Indication: DEPRESSION
     Dosage: 50 MG 2X PER 1 DAY, ORAL
     Route: 048
     Dates: start: 20100101, end: 20100606

REACTIONS (5)
  - DRUG WITHDRAWAL SYNDROME [None]
  - IRRITABILITY [None]
  - MUSCLE SPASMS [None]
  - NAUSEA [None]
  - VOMITING [None]
